FAERS Safety Report 14583434 (Version 2)
Quarter: 2019Q1

REPORT INFORMATION
  Report Type: Spontaneous
  Country: US (occurrence: US)
  Receive Date: 20180228
  Receipt Date: 20190129
  Transmission Date: 20190417
  Serious: Yes (Hospitalization)
  Sender: FDA-Public Use
  Company Number: US-SA-2018SA020959

PATIENT
  Age: 52 Year
  Sex: Female
  Weight: 44.45 kg

DRUGS (2)
  1. AMBIEN [Suspect]
     Active Substance: ZOLPIDEM TARTRATE
     Dosage: UNK UNK,UNK
     Route: 048
  2. PREGABALIN. [Suspect]
     Active Substance: PREGABALIN
     Indication: BACK PAIN
     Dosage: 150 MG,QD
     Route: 048
     Dates: start: 2016

REACTIONS (6)
  - Joint injury [Recovering/Resolving]
  - Renal disorder [Recovered/Resolved]
  - Accident [Unknown]
  - Fall [Unknown]
  - Joint swelling [Unknown]
  - Chromaturia [Unknown]

NARRATIVE: CASE EVENT DATE: 20170622
